FAERS Safety Report 6972768-1 (Version None)
Quarter: 2010Q3

REPORT INFORMATION
  Report Type: 
  Country: None (occurrence: None)
  Receive Date: 20100909
  Receipt Date: 20100831
  Transmission Date: 20110219
  Serious: Yes (Other)
  Sender: FDA-Public Use
  Company Number: US-JNJFOC-20100901972

PATIENT
  Age: 69 Year
  Sex: Female

DRUGS (2)
  1. SODIUM/POTASSIUM PHOSPHATE [Suspect]
     Indication: BOWEL PREPARATION
     Dosage: AT 3 P.M. AND 8 P.M.
     Route: 048
  2. IV FLUIDS [Concomitant]
     Indication: FLUID REPLACEMENT
     Dosage: 100 ML/HOUR
     Route: 041

REACTIONS (1)
  - TETANY [None]
